FAERS Safety Report 11672488 (Version 1)
Quarter: 2015Q4

REPORT INFORMATION
  Report Type: Spontaneous
  Country: US (occurrence: US)
  Receive Date: 20151027
  Receipt Date: 20151027
  Transmission Date: 20160304
  Serious: No
  Sender: FDA-Public Use
  Company Number: US-ELI_LILLY_AND_COMPANY-US201005006425

PATIENT
  Age: 61 Year
  Sex: Male

DRUGS (1)
  1. FORTEO [Suspect]
     Active Substance: TERIPARATIDE
     Indication: OSTEOPOROSIS
     Dosage: 20 UG, DAILY (1/D)
     Dates: start: 20100520, end: 20100531

REACTIONS (13)
  - Lethargy [Unknown]
  - Chills [Unknown]
  - Pyrexia [Recovered/Resolved]
  - Muscular weakness [Unknown]
  - Nausea [Unknown]
  - Injection site rash [Unknown]
  - Gait disturbance [Unknown]
  - Headache [Unknown]
  - Feeling hot [Unknown]
  - Appetite disorder [Unknown]
  - Feeling cold [Unknown]
  - Influenza like illness [Unknown]
  - Asthenia [Unknown]

NARRATIVE: CASE EVENT DATE: 20100520
